FAERS Safety Report 23263509 (Version 2)
Quarter: 2023Q4

REPORT INFORMATION
  Report Type: Spontaneous
  Country: CN (occurrence: CN)
  Receive Date: 20231205
  Receipt Date: 20231213
  Transmission Date: 20240109
  Serious: Yes (Other)
  Sender: FDA-Public Use
  Company Number: CN-TAKEDA-2023TUS115971

PATIENT
  Age: 53 Year
  Sex: Female
  Weight: 55 kg

DRUGS (11)
  1. ADCETRIS [Suspect]
     Active Substance: BRENTUXIMAB VEDOTIN
     Indication: Hodgkin^s disease
     Dosage: 50 MILLIGRAM, QD
     Route: 041
     Dates: start: 20231013
  2. SODIUM CHLORIDE [Suspect]
     Active Substance: SODIUM CHLORIDE
     Indication: Product used for unknown indication
     Dosage: 40 MILLILITER, QD
     Route: 042
     Dates: start: 20231012, end: 20231012
  3. SODIUM CHLORIDE [Suspect]
     Active Substance: SODIUM CHLORIDE
     Dosage: 40 MILLILITER, QD
     Route: 042
     Dates: start: 20231026, end: 20231026
  4. SODIUM CHLORIDE [Suspect]
     Active Substance: SODIUM CHLORIDE
     Dosage: 150 MILLILITER, QD
     Route: 041
     Dates: start: 20231013, end: 20231013
  5. SODIUM CHLORIDE [Suspect]
     Active Substance: SODIUM CHLORIDE
     Dosage: 150 MILLILITER, QD
     Route: 041
     Dates: start: 20231109, end: 20231109
  6. SODIUM CHLORIDE [Suspect]
     Active Substance: SODIUM CHLORIDE
     Dosage: 150 MILLILITER, QD
     Route: 041
     Dates: start: 20231109, end: 20231109
  7. DOXORUBICIN HYDROCHLORIDE [Suspect]
     Active Substance: DOXORUBICIN HYDROCHLORIDE
     Indication: Hodgkin^s disease
     Dosage: 40 MILLIGRAM, QD
     Route: 041
     Dates: start: 20231012
  8. VINDESINE [Suspect]
     Active Substance: VINDESINE
     Indication: Hodgkin^s disease
     Dosage: 4 MILLIGRAM, QD
     Route: 042
     Dates: start: 20231012, end: 20231012
  9. VINDESINE [Suspect]
     Active Substance: VINDESINE
     Dosage: 4 MILLIGRAM, QD
     Route: 042
     Dates: start: 20231109, end: 20231109
  10. DEXTROSE [Suspect]
     Active Substance: DEXTROSE\DEXTROSE MONOHYDRATE
     Indication: Product used for unknown indication
     Dosage: 250 MILLILITER, QD
     Route: 041
     Dates: start: 20231012, end: 20231012
  11. DEXTROSE [Suspect]
     Active Substance: DEXTROSE\DEXTROSE MONOHYDRATE
     Dosage: 250 MILLILITER, QD
     Route: 041
     Dates: start: 20231109, end: 20231109

REACTIONS (2)
  - White blood cell count decreased [Recovering/Resolving]
  - Neutrophil count decreased [Recovering/Resolving]

NARRATIVE: CASE EVENT DATE: 20231019
